FAERS Safety Report 9016463 (Version 2)
Quarter: 2021Q3

REPORT INFORMATION
  Report Type: Report from Study
  Country: US (occurrence: US)
  Receive Date: 20130116
  Receipt Date: 20210729
  Transmission Date: 20211014
  Serious: Yes (Death, Other)
  Sender: FDA-Public Use
  Company Number: US-BAYER-2013-005023

PATIENT
  Age: 24 Year
  Sex: Female

DRUGS (8)
  1. HYDROCODONE [Suspect]
     Active Substance: HYDROCODONE
  2. DIPHENHYDRAMINE. [Suspect]
     Active Substance: DIPHENHYDRAMINE
  3. METHADONE [Suspect]
     Active Substance: METHADONE HYDROCHLORIDE
  4. KEPPRA [Suspect]
     Active Substance: LEVETIRACETAM
  5. HYDROMORPHONE [Suspect]
     Active Substance: HYDROMORPHONE
  6. CLONAZEPAM. [Suspect]
     Active Substance: CLONAZEPAM
  7. PARACETAMOL [Suspect]
     Active Substance: ACETAMINOPHEN
  8. MEPROBAMATE. [Suspect]
     Active Substance: MEPROBAMATE

REACTIONS (3)
  - Toxicity to various agents [Fatal]
  - Accident [Fatal]
  - Overdose [None]
